FAERS Safety Report 4772855-2 (Version None)
Quarter: 2005Q3

REPORT INFORMATION
  Report Type: 
  Country: None (occurrence: None)
  Receive Date: 20050915
  Receipt Date: 20050915
  Transmission Date: 20060218
  Serious: Yes (Hospitalization)
  Sender: FDA-Public Use
  Company Number: None

PATIENT
  Sex: Female
  Weight: 58.9676 kg

DRUGS (2)
  1. WELLBUTRIN XL [Suspect]
     Indication: BIPOLAR I DISORDER
     Dosage: 300MG 1/DAY PO
     Route: 048
     Dates: start: 20040101, end: 20040430
  2. WELLBUTRIN XL [Suspect]
     Indication: DEPRESSION
     Dosage: 300MG 1/DAY PO
     Route: 048
     Dates: start: 20040101, end: 20040430

REACTIONS (2)
  - CONVULSION [None]
  - DRUG PRESCRIBING ERROR [None]
